FAERS Safety Report 9123230 (Version 1)
Quarter: 2013Q1

REPORT INFORMATION
  Report Type: Spontaneous
  Country: US (occurrence: US)
  Receive Date: 20130227
  Receipt Date: 20130227
  Transmission Date: 20140127
  Serious: Yes (Other)
  Sender: FDA-Public Use
  Company Number: US-ROXANE LABORATORIES, INC.-2013-RO-00277RO

PATIENT
  Age: 17 Year
  Sex: Male

DRUGS (3)
  1. LEVETIRACETAM [Suspect]
     Indication: EPILEPSY
     Dosage: 500 MG
  2. LEVETIRACETAM [Suspect]
     Dosage: 1000 MG
  3. CHLORPROMAZINE [Suspect]
     Indication: AUTISM SPECTRUM DISORDER

REACTIONS (2)
  - Pancreatitis acute [Recovered/Resolved]
  - Convulsion [Unknown]
